FAERS Safety Report 6420704-9 (Version None)
Quarter: 2009Q4

REPORT INFORMATION
  Report Type: 
  Country: None (occurrence: None)
  Receive Date: 20091027
  Receipt Date: 20050727
  Transmission Date: 20100525
  Serious: Yes (Hospitalization)
  Sender: FDA-Public Use
  Company Number: 2009009242

PATIENT
  Sex: Female

DRUGS (1)
  1. ACTIQ [Suspect]
     Indication: FIBROMYALGIA
     Dosage: 200 MCG, EVERY 3-4 HOURS), BU
     Route: 002
     Dates: start: 20040101

REACTIONS (5)
  - CARDIAC DISORDER [None]
  - CONTRAINDICATION TO MEDICAL TREATMENT [None]
  - DRUG PRESCRIBING ERROR [None]
  - INAPPROPRIATE SCHEDULE OF DRUG ADMINISTRATION [None]
  - MEDICATION ERROR [None]
